FAERS Safety Report 4330854-9 (Version None)
Quarter: 2004Q1

REPORT INFORMATION
  Report Type: 
  Country: None (occurrence: None)
  Receive Date: 20040331
  Receipt Date: 20040322
  Transmission Date: 20041129
  Serious: Yes (Hospitalization)
  Sender: FDA-Public Use
  Company Number: HQWYE029123MAR04

PATIENT
  Age: 68 Year
  Sex: Male
  Weight: 76.1 kg

DRUGS (8)
  1. MYLOTARG [Suspect]
     Indication: ACUTE MYELOID LEUKAEMIA
     Dosage: 10.8 MG 1X PER 1 DAY, INTRAVENOUS
     Route: 042
     Dates: start: 20040312, end: 20040312
  2. CYTARABINE [Suspect]
     Indication: ACUTE MYELOID LEUKAEMIA
     Dosage: 10, 800 MG DAILY, INTRAVENOUS
     Route: 042
     Dates: start: 20040312
  3. VANCOMYCIN [Concomitant]
  4. CEFTAZIDIME SODIUM [Concomitant]
  5. ALBUTEROL [Concomitant]
  6. MULTIVITAMINS (ASCORBIC ACID/ERGOCALCIFEROL/FOLIC ACID/NICOTINAMIDE/PA [Concomitant]
  7. ALLOPURINOL [Concomitant]
  8. PRAVASTATIN [Concomitant]

REACTIONS (2)
  - CHILLS [None]
  - CLOSTRIDIUM COLITIS [None]
